FAERS Safety Report 10159550 (Version 1)
Quarter: 2014Q2

REPORT INFORMATION
  Report Type: Spontaneous
  Country: US (occurrence: US)
  Receive Date: 20140508
  Receipt Date: 20140508
  Transmission Date: 20141212
  Serious: Yes (Hospitalization, Other)
  Sender: FDA-Public Use
  Company Number: US-ASTRAZENECA-2014SE29593

PATIENT
  Age: 767 Month
  Sex: Female

DRUGS (13)
  1. SYMBICORT [Suspect]
     Indication: CHRONIC OBSTRUCTIVE PULMONARY DISEASE
     Dosage: UNKNOWN DOSE AND FREQUENCY
     Route: 055
  2. SYMBICORT [Suspect]
     Indication: CHRONIC OBSTRUCTIVE PULMONARY DISEASE
     Dosage: UNKNOWN DOSE AND FREQUENCY
     Route: 055
     Dates: start: 2014
  3. ADVAIR DISKUS [Suspect]
     Indication: CHRONIC OBSTRUCTIVE PULMONARY DISEASE
     Dosage: 500/50 MCG, 1 PUFF TWICE PER DAY
     Route: 055
     Dates: start: 2003, end: 200803
  4. BREO ELLIPTA [Suspect]
     Indication: EMPHYSEMA
     Dosage: 1 PUFF PER DAY
     Route: 055
     Dates: start: 20140404, end: 20140414
  5. OXYGEN [Concomitant]
  6. COMBIVENT [Concomitant]
  7. METHOTREXATE [Concomitant]
  8. SULPHACETAMIDE [Concomitant]
  9. FOLIC ACID [Concomitant]
  10. NABUMETONE [Concomitant]
  11. PRO-AIR [Concomitant]
  12. EYE DROPS [Concomitant]
  13. SPIRIVA [Concomitant]

REACTIONS (6)
  - Glaucoma [Unknown]
  - Pneumonia [Recovered/Resolved]
  - Chest discomfort [Recovered/Resolved]
  - Dyspnoea [Recovered/Resolved]
  - Dyspnoea exertional [Recovered/Resolved]
  - Drug ineffective [Recovered/Resolved]
